FAERS Safety Report 8009776-8 (Version None)
Quarter: 2011Q4

REPORT INFORMATION
  Report Type: 
  Country: None (occurrence: None)
  Receive Date: 20111228
  Receipt Date: 20111219
  Transmission Date: 20120403
  Serious: Yes (Other)
  Sender: FDA-Public Use
  Company Number: FI-ACCORD-011721

PATIENT
  Age: 57 Year
  Sex: Female

DRUGS (2)
  1. CARBOPLATIN [Suspect]
  2. GEMCITABINE [Suspect]

REACTIONS (3)
  - DEEP VEIN THROMBOSIS [None]
  - PERIPHERAL ISCHAEMIA [None]
  - OFF LABEL USE [None]
